FAERS Safety Report 11198255 (Version 2)
Quarter: 2015Q2

REPORT INFORMATION
  Report Type: Spontaneous
  Country: FI (occurrence: FI)
  Receive Date: 20150618
  Receipt Date: 20150618
  Transmission Date: 20150821
  Serious: Yes (Hospitalization)
  Sender: FDA-Public Use
  Company Number: FI-ABBVIE-15K-055-1406789-00

PATIENT
  Age: 7 Year
  Sex: Female
  Weight: 32.5 kg

DRUGS (9)
  1. METHOTREXATE [Suspect]
     Active Substance: METHOTREXATE
     Route: 065
     Dates: start: 2015
  2. HUMIRA [Suspect]
     Active Substance: ADALIMUMAB
     Indication: JUVENILE IDIOPATHIC ARTHRITIS
     Route: 058
     Dates: start: 20141029, end: 2015
  3. HUMIRA [Suspect]
     Active Substance: ADALIMUMAB
     Route: 058
     Dates: start: 201504
  4. METHOTREXATE [Suspect]
     Active Substance: METHOTREXATE
     Indication: PRODUCT USED FOR UNKNOWN INDICATION
     Route: 058
     Dates: start: 20141029, end: 2015
  5. ONDANSETRON [Concomitant]
     Active Substance: ONDANSETRON
     Indication: PRODUCT USED FOR UNKNOWN INDICATION
     Route: 048
  6. FOLVITE [Concomitant]
     Active Substance: FOLIC ACID
     Indication: PRODUCT USED FOR UNKNOWN INDICATION
  7. PRONAXEN [Concomitant]
     Active Substance: NAPROXEN
     Indication: PRODUCT USED FOR UNKNOWN INDICATION
  8. PAMOL F [Concomitant]
     Indication: PRODUCT USED FOR UNKNOWN INDICATION
  9. CALCICHEW D3 EXTRA [Concomitant]
     Indication: PRODUCT USED FOR UNKNOWN INDICATION

REACTIONS (16)
  - Musculoskeletal stiffness [Unknown]
  - Nausea [Unknown]
  - Dermatitis infected [Recovered/Resolved]
  - Joint swelling [Unknown]
  - Tendon sheath disorder [Unknown]
  - Ankle deformity [Unknown]
  - Metatarsalgia [Unknown]
  - Molluscum contagiosum [Recovered/Resolved]
  - Joint range of motion decreased [Unknown]
  - Arthropathy [Unknown]
  - Arthritis [Unknown]
  - Gait disturbance [Unknown]
  - Arthralgia [Unknown]
  - Unevaluable event [Unknown]
  - Dermatitis [Recovered/Resolved]
  - Gait disturbance [Unknown]

NARRATIVE: CASE EVENT DATE: 2015
